FAERS Safety Report 7622451-4 (Version None)
Quarter: 2011Q3

REPORT INFORMATION
  Report Type: 
  Country: None (occurrence: None)
  Receive Date: 20110718
  Receipt Date: 20110718
  Transmission Date: 20111222
  Serious: No
  Sender: FDA-Public Use
  Company Number: None

PATIENT
  Age: 74 Year
  Sex: Female

DRUGS (1)
  1. COLCRYS [Suspect]
     Indication: GOUT
     Dosage: 0.6MG  BID PO
     Route: 048
     Dates: start: 20110601, end: 20110701

REACTIONS (7)
  - PRODUCT SUBSTITUTION ISSUE [None]
  - DRUG INEFFECTIVE [None]
  - SKIN DISCOLOURATION [None]
  - ERYTHEMA [None]
  - SWELLING [None]
  - PAIN [None]
  - NAIL DISCOLOURATION [None]
